FAERS Safety Report 25478683 (Version 1)
Quarter: 2025Q2

REPORT INFORMATION
  Report Type: Report from Study
  Country: US (occurrence: US)
  Receive Date: 20250625
  Receipt Date: 20250625
  Transmission Date: 20250716
  Serious: Yes (Life-Threatening)
  Sender: ROCHE
  Company Number: US-ROCHE-10000320326

PATIENT
  Sex: Male

DRUGS (1)
  1. RITUXAN [Suspect]
     Active Substance: RITUXIMAB
     Indication: Nodular lymphocyte predominant Hodgkin lymphoma
     Dosage: 1100 MG EVERY 21 DAYS FOR 6 CYCLES?500MG= 2, 100MG=1
     Route: 042

REACTIONS (2)
  - Arrhythmia [Unknown]
  - Off label use [Unknown]
